FAERS Safety Report 8048905-7 (Version None)
Quarter: 2012Q1

REPORT INFORMATION
  Report Type: 
  Country: None (occurrence: None)
  Receive Date: 20120117
  Receipt Date: 20120111
  Transmission Date: 20120608
  Serious: Yes (Hospitalization, Other)
  Sender: FDA-Public Use
  Company Number: DE-BAYER-2011-115654

PATIENT
  Age: 46 Year
  Sex: Female
  Weight: 57.143 kg

DRUGS (5)
  1. SIMVASTATIN [Concomitant]
     Dosage: 40 MG, HS
     Route: 048
  2. LEVOTHYROXINE SODIUM [Concomitant]
     Dosage: 100 ?G, QD
  3. ASPIRIN [Concomitant]
     Dosage: 100 MG, QD
     Route: 048
  4. MIRENA [Suspect]
     Indication: CONTRACEPTION
     Dosage: 20 MCG/24HR, CONT
     Route: 015
     Dates: end: 20111026
  5. MIRENA [Suspect]
     Indication: MENSTRUAL CYCLE MANAGEMENT
     Dosage: 20 MCG/24HR, CONT
     Route: 015
     Dates: start: 20111026

REACTIONS (6)
  - BRAIN STEM INFARCTION [None]
  - HEADACHE [None]
  - NAUSEA [None]
  - VERTIGO [None]
  - GAIT DISTURBANCE [None]
  - FALL [None]
